FAERS Safety Report 4703775-7 (Version None)
Quarter: 2005Q2

REPORT INFORMATION
  Report Type: 
  Country: None (occurrence: None)
  Receive Date: 20050629
  Receipt Date: 20050629
  Transmission Date: 20051028
  Serious: Yes (Other)
  Sender: FDA-Public Use
  Company Number: None

PATIENT
  Sex: Female
  Weight: 122.4712 kg

DRUGS (1)
  1. GABAPENTIN [Suspect]
     Indication: NEUROPATHY PERIPHERAL
     Dosage: 300 MG 3 CAPS BID PO
     Route: 048
     Dates: start: 20050301, end: 20050401

REACTIONS (3)
  - DRUG EFFECT DECREASED [None]
  - DRUG INTOLERANCE [None]
  - PHARMACEUTICAL PRODUCT COMPLAINT [None]
